FAERS Safety Report 24462839 (Version 1)
Quarter: 2024Q4

REPORT INFORMATION
  Report Type: Spontaneous
  Country: RS (occurrence: RS)
  Receive Date: 20241018
  Receipt Date: 20241018
  Transmission Date: 20250114
  Serious: Yes (Hospitalization, Other)
  Sender: ASTELLAS
  Company Number: RS-GILEAD-2024-0691103

PATIENT
  Sex: Male

DRUGS (2)
  1. AMBISOME [Suspect]
     Active Substance: AMPHOTERICIN B
     Indication: Antifungal treatment
     Dosage: 5 MG/KG
     Route: 065
     Dates: start: 20230115, end: 202303
  2. AMBISOME [Suspect]
     Active Substance: AMPHOTERICIN B
     Indication: Mucormycosis
     Dosage: 10 MG/KG
     Route: 065
     Dates: start: 202310

REACTIONS (8)
  - Exophthalmos [Unknown]
  - Disease progression [Recovered/Resolved]
  - Visual impairment [Unknown]
  - Supraorbital neuralgia [Unknown]
  - Swelling of eyelid [Unknown]
  - Nasal discharge discolouration [Unknown]
  - Pyrexia [Unknown]
  - Headache [Unknown]

NARRATIVE: CASE EVENT DATE: 20230122
